FAERS Safety Report 23020026 (Version 3)
Quarter: 2024Q1

REPORT INFORMATION
  Report Type: Other
  Country: CA (occurrence: CA)
  Receive Date: 20231003
  Receipt Date: 20240226
  Transmission Date: 20240410
  Serious: Yes (Hospitalization, Other)
  Sender: FDA-Public Use
  Company Number: CA-APOTEX-2023AP014216

PATIENT
  Age: 62 Year
  Sex: Female

DRUGS (14)
  1. DEXAMETHASONE [Suspect]
     Active Substance: DEXAMETHASONE
     Indication: Plasma cell myeloma refractory
     Dosage: UNK
     Route: 065
  2. DEXAMETHASONE [Suspect]
     Active Substance: DEXAMETHASONE
     Dosage: 40 MILLIGRAM
     Route: 065
  3. CISPLATIN [Suspect]
     Active Substance: CISPLATIN
     Indication: Plasma cell myeloma refractory
     Dosage: UNK
     Route: 065
  4. CYCLOPHOSPHAMIDE [Suspect]
     Active Substance: CYCLOPHOSPHAMIDE
     Indication: Plasma cell myeloma refractory
     Dosage: UNK
     Route: 065
  5. CYCLOPHOSPHAMIDE [Suspect]
     Active Substance: CYCLOPHOSPHAMIDE
     Dosage: 1500 MILLIGRAM/SQ. METER
     Route: 065
  6. DOXORUBICIN [Suspect]
     Active Substance: DOXORUBICIN
     Indication: Plasma cell myeloma refractory
     Dosage: UNK
     Route: 065
  7. ETOPOSIDE [Suspect]
     Active Substance: ETOPOSIDE
     Indication: Plasma cell myeloma refractory
     Dosage: UNK
     Route: 065
  8. VENCLEXTA [Suspect]
     Active Substance: VENETOCLAX
     Indication: Plasma cell myeloma refractory
     Dosage: 400 MILLIGRAM
     Route: 065
  9. VENCLEXTA [Suspect]
     Active Substance: VENETOCLAX
     Dosage: 800 MILLIGRAM
     Route: 065
  10. VENCLEXTA [Suspect]
     Active Substance: VENETOCLAX
     Dosage: UNK
     Route: 065
  11. KYPROLIS [Suspect]
     Active Substance: CARFILZOMIB
     Indication: Plasma cell myeloma refractory
     Dosage: 36 MICROGRAM/SQ. METER
     Route: 065
  12. KYPROLIS [Suspect]
     Active Substance: CARFILZOMIB
     Dosage: UNK
     Route: 065
  13. POMALIDOMIDE [Concomitant]
     Active Substance: POMALIDOMIDE
     Indication: Product used for unknown indication
     Dosage: UNK
     Route: 065
  14. PREDNISONE [Concomitant]
     Active Substance: PREDNISONE
     Indication: Product used for unknown indication
     Dosage: UNK
     Route: 065

REACTIONS (10)
  - Confusional state [Recovering/Resolving]
  - Cytopenia [Recovering/Resolving]
  - Disease progression [Recovering/Resolving]
  - Gastrointestinal disorder [Recovering/Resolving]
  - Plasma cell myeloma recurrent [Recovering/Resolving]
  - Pyrexia [Recovering/Resolving]
  - Product use in unapproved indication [Unknown]
  - Bone marrow disorder [Recovering/Resolving]
  - Off label use [Recovering/Resolving]
  - Sepsis [Recovering/Resolving]
